FAERS Safety Report 7955133-X (Version None)
Quarter: 2011Q4

REPORT INFORMATION
  Report Type: 
  Country: None (occurrence: None)
  Receive Date: 20111202
  Receipt Date: 20111123
  Transmission Date: 20120403
  Serious: Yes (Hospitalization)
  Sender: FDA-Public Use
  Company Number: CA-JNJFOC-20111110183

PATIENT
  Sex: Female
  Weight: 53 kg

DRUGS (5)
  1. IMURAN [Concomitant]
  2. SERTRALINE HYDROCHLORIDE [Concomitant]
  3. REMICADE [Suspect]
     Indication: CROHN'S DISEASE
     Dosage: 46 INFUSIONS TO DATE
     Route: 042
  4. RABEPRAZOLE SODIUM [Concomitant]
  5. MESASAL [Concomitant]

REACTIONS (1)
  - UTERINE OPERATION [None]
